FAERS Safety Report 13102869 (Version 15)
Quarter: 2019Q3

REPORT INFORMATION
  Report Type: Report from Study
  Country: US (occurrence: US)
  Receive Date: 20170110
  Receipt Date: 20190906
  Transmission Date: 20191004
  Serious: Yes (Hospitalization, Other)
  Sender: FDA-Public Use
  Company Number: US-ACTELION-A-US2016-141630

PATIENT
  Age: 66 Year
  Sex: Female
  Weight: 52.61 kg

DRUGS (5)
  1. OPSUMIT [Suspect]
     Active Substance: MACITENTAN
     Indication: PULMONARY ARTERIAL HYPERTENSION
     Dosage: 10 MG, QD
     Route: 048
     Dates: start: 20160318
  2. OPSUMIT [Suspect]
     Active Substance: MACITENTAN
     Dosage: UNK
     Route: 048
  3. UPTRAVI [Suspect]
     Active Substance: SELEXIPAG
     Dosage: 200 MCG, BID
     Route: 048
     Dates: start: 20160128
  4. UPTRAVI [Suspect]
     Active Substance: SELEXIPAG
     Indication: PULMONARY ARTERIAL HYPERTENSION
     Dosage: 400 MCG, BID
     Route: 048
  5. ADEMPAS [Concomitant]
     Active Substance: RIOCIGUAT

REACTIONS (26)
  - Cough [Unknown]
  - Fall [Unknown]
  - Nasal congestion [Unknown]
  - Decreased appetite [Recovering/Resolving]
  - Fatigue [Unknown]
  - Dizziness [Unknown]
  - Diarrhoea [Unknown]
  - Haemoptysis [Unknown]
  - Vomiting [Unknown]
  - Pancreatic cyst [Unknown]
  - Bronchitis [Recovering/Resolving]
  - Urinary tract infection [Recovered/Resolved]
  - Nasopharyngitis [Unknown]
  - Wheezing [Unknown]
  - Dyspnoea [Unknown]
  - Influenza [Unknown]
  - Rhinorrhoea [Unknown]
  - Incorrect dose administered [Unknown]
  - Nausea [Unknown]
  - Infection [Unknown]
  - Peripheral swelling [Unknown]
  - Malaise [Unknown]
  - Pneumonia [Unknown]
  - Chronic obstructive pulmonary disease [Unknown]
  - Pancreatitis [Unknown]
  - Abdominal discomfort [Unknown]

NARRATIVE: CASE EVENT DATE: 20160822
